FAERS Safety Report 25607769 (Version 1)
Quarter: 2025Q3

REPORT INFORMATION
  Report Type: Spontaneous
  Country: US (occurrence: US)
  Receive Date: 20250725
  Receipt Date: 20250725
  Transmission Date: 20251021
  Serious: No
  Sender: MERCK SHARP & DOHME LLC
  Company Number: US-009507513-2300475

PATIENT
  Age: 61 Year
  Sex: Female

DRUGS (3)
  1. KEYTRUDA [Suspect]
     Active Substance: PEMBROLIZUMAB
     Route: 042
     Dates: start: 20241030, end: 20241030
  2. KEYTRUDA [Suspect]
     Active Substance: PEMBROLIZUMAB
     Route: 042
     Dates: start: 20250212, end: 20250212
  3. KEYTRUDA [Suspect]
     Active Substance: PEMBROLIZUMAB
     Route: 042
     Dates: start: 20250507, end: 20250507

REACTIONS (5)
  - Rash [Recovered/Resolved]
  - Hypoaesthesia oral [Unknown]
  - Tongue pruritus [Unknown]
  - Stomatitis [Recovered/Resolved]
  - Throat lesion [Recovered/Resolved]

NARRATIVE: CASE EVENT DATE: 20250101
